FAERS Safety Report 22394851 (Version 3)
Quarter: 2023Q4

REPORT INFORMATION
  Report Type: Spontaneous
  Country: US (occurrence: US)
  Receive Date: 20230601
  Receipt Date: 20231024
  Transmission Date: 20240110
  Serious: No
  Sender: FDA-Public Use
  Company Number: US-PFIZER INC-PV202300096585

PATIENT
  Age: 65 Year
  Sex: Female

DRUGS (3)
  1. IBRANCE [Suspect]
     Active Substance: PALBOCICLIB
     Indication: Breast cancer female
     Dosage: 75 MG, CYCLIC (DAILY FOR 21 DAYS, THEN 7 DAYS OFF, REPEAT CYCLE EVERY 28 DAYS)
     Route: 048
     Dates: start: 20220929
  2. IBRANCE [Suspect]
     Active Substance: PALBOCICLIB
     Dosage: 75 MG, CYCLIC (DAILY FOR 21 DAYS, THEN 7 DAYS OFF, REPEAT CYCLE EVERY 28 DAYS)
     Route: 048
  3. MORPHINE [Concomitant]
     Active Substance: MORPHINE
     Dosage: UNK

REACTIONS (3)
  - Arthralgia [Unknown]
  - Fatigue [Unknown]
  - Nausea [Unknown]
